FAERS Safety Report 5639770-3 (Version None)
Quarter: 2008Q1

REPORT INFORMATION
  Report Type: 
  Country: None (occurrence: None)
  Receive Date: 20080225
  Receipt Date: 20080218
  Transmission Date: 20080703
  Serious: Yes (Other)
  Sender: FDA-Public Use
  Company Number: B0509026A

PATIENT

DRUGS (2)
  1. COMBIVIR [Suspect]
     Indication: PROPHYLAXIS AGAINST HIV INFECTION
     Dosage: ORAL
     Route: 048
     Dates: start: 20070301
  2. NELFINAVIR MESYLATE (FORMULATION UNKNOWN) (NELFINAVIR MESYLATE) [Suspect]
     Indication: PROPHYLAXIS AGAINST HIV INFECTION
     Dates: start: 20070301

REACTIONS (2)
  - GASTROINTESTINAL DISORDER [None]
  - LIVER FUNCTION TEST ABNORMAL [None]
